FAERS Safety Report 5680058-2 (Version None)
Quarter: 2008Q1

REPORT INFORMATION
  Report Type: 
  Country: None (occurrence: None)
  Receive Date: 20080325
  Receipt Date: 20080325
  Transmission Date: 20080703
  Serious: No
  Sender: FDA-Public Use
  Company Number: None

PATIENT
  Age: 52 Year
  Sex: Male
  Weight: 77.1115 kg

DRUGS (1)
  1. DILANTIN [Suspect]
     Indication: CONVULSION PROPHYLAXIS
     Dosage: 500 MG DAILY PO
     Route: 048
     Dates: start: 20080301, end: 20080324

REACTIONS (11)
  - CHEST PAIN [None]
  - CONFUSIONAL STATE [None]
  - DYSARTHRIA [None]
  - MIDDLE INSOMNIA [None]
  - NERVOUSNESS [None]
  - PALPITATIONS [None]
  - PARANOIA [None]
  - PHARMACEUTICAL PRODUCT COMPLAINT [None]
  - SOMNOLENCE [None]
  - TINNITUS [None]
  - TREMOR [None]
